FAERS Safety Report 26214460 (Version 1)
Quarter: 2025Q4

REPORT INFORMATION
  Report Type: Spontaneous
  Country: EU (occurrence: EU)
  Receive Date: 20251230
  Receipt Date: 20251230
  Transmission Date: 20260117
  Serious: Yes (Other)
  Sender: SANOFI AVENTIS
  Company Number: EU-DialogSolutions-SAAVPROD-PI857372-C1

PATIENT
  Age: 3 Month
  Sex: Male

DRUGS (3)
  1. ALEMTUZUMAB [Suspect]
     Active Substance: ALEMTUZUMAB
     Indication: Osteopetrosis
     Dosage: 0.7 MG/KG
     Route: 041
  2. FLUDARABINE PHOSPHATE [Suspect]
     Active Substance: FLUDARABINE PHOSPHATE
     Indication: Osteopetrosis
     Dosage: 150 MG/M2
  3. BUSULFAN [Suspect]
     Active Substance: BUSULFAN
     Indication: Osteopetrosis
     Dosage: AUC 86 MG/LH

REACTIONS (3)
  - Cytomegalovirus infection [Recovered/Resolved]
  - Cytomegalovirus infection reactivation [Recovered/Resolved]
  - Off label use [Recovered/Resolved]
